FAERS Safety Report 15305072 (Version 8)
Quarter: 2020Q2

REPORT INFORMATION
  Report Type: Report from Study
  Country: PL (occurrence: PL)
  Receive Date: 20180822
  Receipt Date: 20200409
  Transmission Date: 20200713
  Serious: Yes (Hospitalization, Other)
  Sender: FDA-Public Use
  Company Number: PL-AMGEN-POLCT2018114634

PATIENT
  Age: 55 Year
  Sex: Female
  Weight: 70 kg

DRUGS (2)
  1. METHOTREXATE. [Suspect]
     Active Substance: METHOTREXATE
     Indication: RHEUMATOID ARTHRITIS
     Dosage: 20 MG, WEEKLY, SC, QW
     Route: 058
     Dates: start: 20170320, end: 201808
  2. ETANERCEPT [Suspect]
     Active Substance: ETANERCEPT
     Indication: RHEUMATOID ARTHRITIS
     Dosage: 50 MILLIGRAM, WEEKLY
     Route: 065
     Dates: start: 20150617, end: 20180615

REACTIONS (1)
  - Rheumatoid arthritis [Recovered/Resolved with Sequelae]

NARRATIVE: CASE EVENT DATE: 20180813
